FAERS Safety Report 9291741 (Version 2)
Quarter: 2013Q2

REPORT INFORMATION
  Report Type: Spontaneous
  Country: JP (occurrence: JP)
  Receive Date: 20130516
  Receipt Date: 20130524
  Transmission Date: 20140414
  Serious: Yes (Other)
  Sender: FDA-Public Use
  Company Number: JP-009507513-1305JPN006663

PATIENT
  Sex: Male

DRUGS (2)
  1. GASTER [Suspect]
     Indication: ABDOMINAL PAIN UPPER
     Dosage: 40 MG, QD
     Route: 050
     Dates: start: 201303, end: 2013
  2. NU-LOTAN TABLET 50 [Suspect]
     Dosage: 50 MG, QD
     Route: 050
     Dates: start: 200505

REACTIONS (2)
  - Dysphagia [Recovered/Resolved]
  - Intentional drug misuse [Unknown]
